FAERS Safety Report 13314424 (Version 3)
Quarter: 2017Q2

REPORT INFORMATION
  Report Type: Report from Study
  Country: CO (occurrence: CO)
  Receive Date: 20170309
  Receipt Date: 20170502
  Transmission Date: 20170830
  Serious: Yes (Hospitalization, Other)
  Sender: FDA-Public Use
  Company Number: CO-ACTELION-A-NJ2017-150955

PATIENT
  Age: 51 Year
  Sex: Female

DRUGS (1)
  1. VENTAVIS [Suspect]
     Active Substance: ILOPROST
     Indication: PULMONARY ARTERIAL HYPERTENSION
     Dosage: 1 DF, 6 X/DAY
     Route: 055
     Dates: start: 20091116, end: 20170225

REACTIONS (4)
  - Cerebrovascular accident [Not Recovered/Not Resolved]
  - Aphasia [Recovering/Resolving]
  - Hemiparesis [Recovering/Resolving]
  - Physical disability [Unknown]

NARRATIVE: CASE EVENT DATE: 20170225
